FAERS Safety Report 8766859 (Version 2)
Quarter: 2012Q4

REPORT INFORMATION
  Report Type: 
  Country: ES (occurrence: ES)
  Receive Date: 20120904
  Receipt Date: 20121123
  Transmission Date: 20130627
  Serious: Yes (Death)
  Sender: FDA-Public Use
  Company Number: ES-JNJFOC-20120813508

PATIENT
  Sex: Female

DRUGS (3)
  1. DOXORUBICIN [Suspect]
     Indication: SARCOMA
     Route: 042
  2. RADIOTHERAPY [Concomitant]
     Indication: SARCOMA
     Route: 065
  3. IFOSFAMIDE [Concomitant]
     Indication: SARCOMA
     Route: 065

REACTIONS (3)
  - Sarcoma [Fatal]
  - Pain [Unknown]
  - Off label use [Unknown]
